FAERS Safety Report 21578428 (Version 1)
Quarter: 2022Q4

REPORT INFORMATION
  Report Type: Report from Study
  Country: US (occurrence: US)
  Receive Date: 20221110
  Receipt Date: 20221110
  Transmission Date: 20230113
  Serious: Yes (Other)
  Sender: FDA-Public Use
  Company Number: US-ABBVIE-4194138

PATIENT
  Age: 61 Year
  Sex: Female

DRUGS (1)
  1. HUMIRA [Suspect]
     Active Substance: ADALIMUMAB
     Indication: Rheumatoid arthritis
     Dosage: FORM STRENGTH 40 MG
     Route: 058
     Dates: end: 202204

REACTIONS (8)
  - Ankle fracture [Unknown]
  - Joint swelling [Unknown]
  - Scab [Unknown]
  - Fatigue [Unknown]
  - Granuloma annulare [Unknown]
  - Pain [Unknown]
  - Dry skin [Unknown]
  - Peripheral swelling [Unknown]

NARRATIVE: CASE EVENT DATE: 20220601
